FAERS Safety Report 9236481 (Version 7)
Quarter: 2014Q3

REPORT INFORMATION
  Report Type: Spontaneous
  Country: US (occurrence: US)
  Receive Date: 20130417
  Receipt Date: 20140904
  Transmission Date: 20150326
  Serious: Yes (Disabling)
  Sender: FDA-Public Use
  Company Number: US-009507513-1304USA005209

PATIENT
  Sex: Male

DRUGS (2)
  1. PROSCAR [Suspect]
     Active Substance: FINASTERIDE
     Indication: BENIGN PROSTATIC HYPERPLASIA
     Dosage: 1 PILL QD
     Route: 048
     Dates: start: 200506, end: 2007
  2. FINASTERIDE. [Suspect]
     Active Substance: FINASTERIDE
     Indication: BENIGN PROSTATIC HYPERPLASIA
     Dosage: 5 MG, QD
     Route: 048
     Dates: start: 20070614, end: 2010

REACTIONS (12)
  - Blood testosterone decreased [Unknown]
  - Hypogonadism [Unknown]
  - Genital injury [Unknown]
  - Blood triglycerides increased [Unknown]
  - Circadian rhythm sleep disorder [Unknown]
  - Prostatitis [Unknown]
  - Erectile dysfunction [Unknown]
  - Peyronie^s disease [Not Recovered/Not Resolved]
  - Drug hypersensitivity [Unknown]
  - Emotional distress [Unknown]
  - Sexual dysfunction [Unknown]
  - Drug ineffective [Unknown]

NARRATIVE: CASE EVENT DATE: 2007
